FAERS Safety Report 17917397 (Version 1)
Quarter: 2020Q2

REPORT INFORMATION
  Report Type: Spontaneous
  Country: SE (occurrence: SE)
  Receive Date: 20200619
  Receipt Date: 20200619
  Transmission Date: 20200714
  Serious: Yes (Other)
  Sender: FDA-Public Use
  Company Number: SE-AMGEN-SWESP2020096567

PATIENT
  Age: 42 Year
  Sex: Male

DRUGS (1)
  1. AMGEVITA [Suspect]
     Active Substance: ADALIMUMAB
     Indication: PSORIASIS
     Dosage: 80 MILLIGRAM, Q2WK
     Route: 058
     Dates: start: 20190514, end: 20200324

REACTIONS (4)
  - Eye swelling [Recovered/Resolved]
  - Rash [Recovered/Resolved]
  - Eye irritation [Recovered/Resolved]
  - Product substitution issue [Recovered/Resolved]

NARRATIVE: CASE EVENT DATE: 20190514
